FAERS Safety Report 21289176 (Version 1)
Quarter: 2022Q3

REPORT INFORMATION
  Report Type: Spontaneous
  Country: US (occurrence: BR)
  Receive Date: 20220902
  Receipt Date: 20220902
  Transmission Date: 20221026
  Serious: No
  Sender: FDA-Public Use
  Company Number: US-ABBVIE-22K-163-4365353-00

PATIENT
  Age: 38 Year
  Sex: Female

DRUGS (1)
  1. ANDROGEL [Suspect]
     Active Substance: TESTOSTERONE
     Indication: Libido decreased
     Dosage: 50 MILLIGRAM, GEL
     Route: 062

REACTIONS (1)
  - Product prescribing error [Unknown]
